FAERS Safety Report 7217803-0 (Version None)
Quarter: 2011Q1

REPORT INFORMATION
  Report Type: 
  Country: None (occurrence: None)
  Receive Date: 20110110
  Receipt Date: 20101228
  Transmission Date: 20110831
  Serious: Yes (Other)
  Sender: FDA-Public Use
  Company Number: PHHY2010US86505

PATIENT
  Sex: Female

DRUGS (12)
  1. VITAMIN B-12 [Concomitant]
  2. ARICEPT [Suspect]
  3. CRESTOR [Concomitant]
  4. EXELON [Suspect]
     Dosage: 9.5 MG, UNK
     Route: 062
  5. ATENOLOL [Concomitant]
  6. SERTRALINE HYDROCHLORIDE [Concomitant]
  7. VITAMIN D [Concomitant]
  8. TEMAZEPAM [Concomitant]
  9. EXELON [Suspect]
     Dosage: 4.6 MG, UNK
     Route: 062
  10. COUMADIN [Concomitant]
  11. WARFARIN [Concomitant]
  12. ASPIRIN [Concomitant]

REACTIONS (4)
  - BALANCE DISORDER [None]
  - AMNESIA [None]
  - CEREBROVASCULAR DISORDER [None]
  - MOVEMENT DISORDER [None]
